FAERS Safety Report 7578394 (Version 3)
Quarter: 2013Q4

REPORT INFORMATION
  Report Type: Spontaneous
  Country: US (occurrence: None)
  Receive Date: 20100831
  Receipt Date: 20131217
  Transmission Date: 20140711
  Serious: Yes (Other)
  Sender: FDA-Public Use
  Company Number: 2010S1005200

PATIENT
  Age: 50 Year
  Sex: Male

DRUGS (13)
  1. FLEET PHOSPHO-SODA [Suspect]
     Indication: COLONOSCOPY
     Dosage: 90 ML, 2 IN 24 HOURS, ORAL
     Route: 048
     Dates: start: 20030128, end: 20030128
  2. FLEET ENEMA [Suspect]
     Indication: PRODUCT USED FOR UNKNOWN INDICATION
     Dosage: EVERY OTHER DAY, RETCA;
     Route: 054
     Dates: start: 1992
  3. PROTONIX [Concomitant]
  4. LORTAB [Concomitant]
  5. TYLENOL [Concomitant]
  6. TRAMADOL HYDROCHLORIDE [Concomitant]
  7. HYDROCODONE [Concomitant]
  8. ULTRAM [Concomitant]
  9. CIPRO [Concomitant]
  10. FLAGYL [Concomitant]
  11. VIAGRA [Concomitant]
  12. VALIUM [Concomitant]
  13. PEPCID [Concomitant]

REACTIONS (4)
  - Renal failure acute [None]
  - Dialysis [None]
  - Inappropriate schedule of drug administration [None]
  - Incorrect drug administration duration [None]
